FAERS Safety Report 7368651-2 (Version None)
Quarter: 2011Q1

REPORT INFORMATION
  Report Type: 
  Country: None (occurrence: None)
  Receive Date: 20110304
  Receipt Date: 20101029
  Transmission Date: 20110831
  Serious: Yes (Hospitalization)
  Sender: FDA-Public Use
  Company Number: CLOF-1000032

PATIENT
  Age: 59 Year
  Sex: Male

DRUGS (3)
  1. CYTARABINE [Suspect]
     Indication: ACUTE MYELOID LEUKAEMIA
     Dosage: 1 G/M2, QD ; 1 G/M2, ONCE, INTRAVENOUS ; 1800 MG, QDX5, INTRAVENOUS
     Route: 042
     Dates: start: 20071029, end: 20071101
  2. CYTARABINE [Suspect]
     Indication: ACUTE MYELOID LEUKAEMIA
     Dosage: 1 G/M2, QD ; 1 G/M2, ONCE, INTRAVENOUS ; 1800 MG, QDX5, INTRAVENOUS
     Route: 042
     Dates: start: 20071105, end: 20071105
  3. CYTARABINE [Suspect]
     Indication: ACUTE MYELOID LEUKAEMIA
     Dosage: 1 G/M2, QD ; 1 G/M2, ONCE, INTRAVENOUS ; 1800 MG, QDX5, INTRAVENOUS
     Route: 042
     Dates: start: 20071126, end: 20071130

REACTIONS (25)
  - ACUTE RESPIRATORY FAILURE [None]
  - TRICUSPID VALVE INCOMPETENCE [None]
  - PNEUMONIA [None]
  - ASPERGILLOSIS [None]
  - LUNG NEOPLASM [None]
  - HEPATIC FIBROSIS [None]
  - HYPERTENSION [None]
  - ATRIAL FIBRILLATION [None]
  - NEPHROCALCINOSIS [None]
  - MITRAL VALVE INCOMPETENCE [None]
  - BRADYCARDIA [None]
  - PNEUMONIA KLEBSIELLA [None]
  - FEBRILE NEUTROPENIA [None]
  - PLEURAL EFFUSION [None]
  - LACTIC ACIDOSIS [None]
  - HERPES ZOSTER [None]
  - HAEMOSIDEROSIS [None]
  - PERICARDITIS ADHESIVE [None]
  - RENAL INFARCT [None]
  - CHEST PAIN [None]
  - ADRENAL NEOPLASM [None]
  - RESPIRATORY DISORDER [None]
  - PULMONARY HAEMORRHAGE [None]
  - FLUID OVERLOAD [None]
  - PLEURITIC PAIN [None]
